FAERS Safety Report 19412213 (Version 6)
Quarter: 2022Q2

REPORT INFORMATION
  Report Type: Report from Study
  Country: CL (occurrence: CL)
  Receive Date: 20210614
  Receipt Date: 20220609
  Transmission Date: 20220721
  Serious: Yes (Hospitalization, Other)
  Sender: FDA-Public Use
  Company Number: NVSC2021CL127671

PATIENT
  Sex: Male

DRUGS (1)
  1. COSENTYX [Suspect]
     Active Substance: SECUKINUMAB
     Indication: Psoriatic arthropathy
     Dosage: 300 MG, QMO
     Route: 058
     Dates: start: 20210203, end: 20210415

REACTIONS (27)
  - COVID-19 pneumonia [Not Recovered/Not Resolved]
  - Hypertension [Not Recovered/Not Resolved]
  - Decreased immune responsiveness [Unknown]
  - Moaning [Unknown]
  - Gastritis [Unknown]
  - Swelling [Unknown]
  - Feeling of despair [Unknown]
  - Fibrosis [Unknown]
  - Malaise [Unknown]
  - Nervous system disorder [Not Recovered/Not Resolved]
  - Emphysema [Unknown]
  - Lung disorder [Unknown]
  - Coma [Recovered/Resolved]
  - Eschar [Unknown]
  - Hypoaesthesia [Unknown]
  - Pain in extremity [Unknown]
  - Mental disorder [Unknown]
  - Cough [Unknown]
  - Unevaluable event [Unknown]
  - Ulcer [Unknown]
  - Arthritis [Unknown]
  - Benign hepatic neoplasm [Unknown]
  - Scab [Unknown]
  - Fatigue [Unknown]
  - Fear [Unknown]
  - Weight decreased [Recovering/Resolving]
  - Asthenia [Unknown]
